FAERS Safety Report 9855312 (Version 2)
Quarter: 2014Q1

REPORT INFORMATION
  Report Type: Report from Study
  Country: ES (occurrence: ES)
  Receive Date: 20140130
  Receipt Date: 20140130
  Transmission Date: 20141002
  Serious: Yes (Hospitalization)
  Sender: FDA-Public Use
  Company Number: ES-ROCHE-1229202

PATIENT
  Age: 69 Year
  Sex: Female
  Weight: 81 kg

DRUGS (16)
  1. OBINUTUZUMAB [Suspect]
     Indication: DIFFUSE LARGE B-CELL LYMPHOMA
     Dosage: MOST RECENT DOSE RECEIVED ON 21/MAY/2013 AT A VOLUME OF 250 ML AND DOSE CONCENTRATION 4 MG/ML
     Route: 042
     Dates: start: 20130513
  2. CYCLOPHOSPHAMIDE [Suspect]
     Indication: DIFFUSE LARGE B-CELL LYMPHOMA
     Dosage: MOST RECENT DOSE RECEIVED ON 13/MAY/2013 AT A DOSE OF 1432 MG
     Route: 042
     Dates: start: 20130513
  3. DOXORUBICIN [Suspect]
     Indication: DIFFUSE LARGE B-CELL LYMPHOMA
     Dosage: MOST RECENT DOSE RECEIVED ON 13/MAY/2013 AT A DOSE OF 95 MG
     Route: 042
     Dates: start: 20130513
  4. VINCRISTINE [Suspect]
     Indication: DIFFUSE LARGE B-CELL LYMPHOMA
     Dosage: MOST RECENT DOSE RECEIVED ON 13/MAY/2013 AT A DOSE OF 2 MG
     Route: 050
     Dates: start: 20130513
  5. PREDNISONE [Suspect]
     Indication: DIFFUSE LARGE B-CELL LYMPHOMA
     Dosage: MOST RECENT DOSE RECEIVED ON 17/MAY/2013 AT A DOSE OF 100 MG
     Route: 065
     Dates: start: 20130513
  6. DIAZEPAM [Concomitant]
     Indication: DEPRESSION
     Route: 065
  7. LEVOTIROXINA [Concomitant]
     Indication: HYPOTHYROIDISM
     Route: 065
  8. SYMBICORT [Concomitant]
     Indication: ASTHMA PROPHYLAXIS
  9. SALBUTAMOL [Concomitant]
     Indication: ASTHMA PROPHYLAXIS
     Route: 065
  10. PARACETAMOL [Concomitant]
     Indication: PROPHYLAXIS
     Route: 065
     Dates: start: 20130513
  11. POLARAMINE [Concomitant]
     Indication: PROPHYLAXIS
     Route: 065
     Dates: start: 20130513
  12. GRANISETRON [Concomitant]
     Indication: PROPHYLAXIS OF NAUSEA AND VOMITING
     Route: 065
     Dates: start: 20130513
  13. ZYLORIC [Concomitant]
     Route: 065
     Dates: start: 20130513, end: 20130517
  14. METHOTREXATE [Concomitant]
     Route: 065
     Dates: start: 20130513
  15. ACICLOVIR [Concomitant]
     Indication: ORAL HERPES
     Route: 065
     Dates: start: 20130529, end: 20130602
  16. LACTITOL [Concomitant]
     Indication: CONSTIPATION
     Route: 065
     Dates: start: 20130526, end: 20130528

REACTIONS (1)
  - Febrile neutropenia [Recovered/Resolved]
